FAERS Safety Report 18010601 (Version 2)
Quarter: 2020Q3

REPORT INFORMATION
  Report Type: Spontaneous
  Country: IN (occurrence: IN)
  Receive Date: 20200710
  Receipt Date: 20200722
  Transmission Date: 20201103
  Serious: Yes (Hospitalization, Other)
  Sender: FDA-Public Use
  Company Number: IN-PFIZER INC-2020255932

PATIENT
  Age: 43 Year
  Sex: Male

DRUGS (1)
  1. METHYLPREDNISOLONE SODIUM SUCCINATE. [Suspect]
     Active Substance: METHYLPREDNISOLONE SODIUM SUCCINATE
     Indication: MYOCLONUS
     Dosage: 1 MG, DAILY
     Route: 042

REACTIONS (2)
  - Hypomania [Recovered/Resolved]
  - Steroid diabetes [Recovered/Resolved]
